FAERS Safety Report 9513458 (Version 1)
Quarter: 2013Q3

REPORT INFORMATION
  Report Type: Spontaneous
  Country: US (occurrence: US)
  Receive Date: 20130910
  Receipt Date: 20130910
  Transmission Date: 20140515
  Serious: No
  Sender: FDA-Public Use
  Company Number: US-TARO-2013P1002869

PATIENT
  Age: 65 Year
  Sex: Female
  Weight: 72.58 kg

DRUGS (4)
  1. WARFARIN SODIUM TABLETS USP 7.5MG [Suspect]
     Route: 048
     Dates: start: 201301
  2. COQ10 [Suspect]
  3. PRISTIQ [Concomitant]
  4. APLENZIN [Concomitant]

REACTIONS (2)
  - International normalised ratio fluctuation [Not Recovered/Not Resolved]
  - Drug interaction [Unknown]
